FAERS Safety Report 7822289-9 (Version None)
Quarter: 2011Q4

REPORT INFORMATION
  Report Type: 
  Country: None (occurrence: None)
  Receive Date: 20111018
  Receipt Date: 20110429
  Transmission Date: 20120403
  Serious: No
  Sender: FDA-Public Use
  Company Number: US-ASTRAZENECA-2011SE24996

PATIENT
  Age: 87 Year
  Sex: Male
  Weight: 83 kg

DRUGS (7)
  1. HYDROCORTISONE [Concomitant]
  2. TRAZODONE HYDROCHLORIDE [Concomitant]
  3. ZOLPIDEM [Concomitant]
  4. SYMBICORT [Suspect]
     Indication: CHRONIC OBSTRUCTIVE PULMONARY DISEASE
     Dosage: 320 MCG, BID
     Route: 055
     Dates: start: 20110201
  5. SYNTHROID [Concomitant]
  6. AVODART [Concomitant]
  7. KETOCONAZOLE [Concomitant]

REACTIONS (3)
  - DYSPNOEA [None]
  - DYSPHONIA [None]
  - PALPITATIONS [None]
